FAERS Safety Report 18288991 (Version 1)
Quarter: 2020Q3

REPORT INFORMATION
  Report Type: Report from Study
  Country: US (occurrence: US)
  Receive Date: 20200921
  Receipt Date: 20200921
  Transmission Date: 20201103
  Serious: Yes (Other)
  Sender: FDA-Public Use
  Company Number: US-SHIRE-US202029516

PATIENT
  Age: 39 Year
  Sex: Male

DRUGS (2)
  1. ADDERALL XR [Suspect]
     Active Substance: AMPHETAMINE ASPARTATE\AMPHETAMINE SULFATE\DEXTROAMPHETAMINE SACCHARATE\DEXTROAMPHETAMINE SULFATE
     Dosage: 100 MILLIGRAM, 1X/DAY:QD
     Route: 065
  2. ADDERALL XR [Suspect]
     Active Substance: AMPHETAMINE ASPARTATE\AMPHETAMINE SULFATE\DEXTROAMPHETAMINE SACCHARATE\DEXTROAMPHETAMINE SULFATE
     Indication: PRODUCT USED FOR UNKNOWN INDICATION
     Dosage: 40 MILLIGRAM, 1X/DAY:QD
     Route: 065

REACTIONS (10)
  - Feeling jittery [Unknown]
  - Dependence [Unknown]
  - Insomnia [Unknown]
  - Drug abuse [Unknown]
  - Anxiety [Unknown]
  - Irritability [Unknown]
  - Agitation [Unknown]
  - Unevaluable event [Unknown]
  - Mood swings [Unknown]
  - Intentional overdose [Unknown]
